APPROVED DRUG PRODUCT: ZITHROMAX
Active Ingredient: AZITHROMYCIN
Strength: EQ 500MG BASE/VIAL
Dosage Form/Route: INJECTABLE;INJECTION
Application: N050733 | Product #001 | TE Code: AP
Applicant: PFIZER INC
Approved: Jan 30, 1997 | RLD: Yes | RS: Yes | Type: RX